FAERS Safety Report 9992989 (Version 1)
Quarter: 2014Q1

REPORT INFORMATION
  Report Type: Report from Study
  Country: US (occurrence: US)
  Receive Date: 20140310
  Receipt Date: 20140310
  Transmission Date: 20141002
  Serious: No
  Sender: FDA-Public Use
  Company Number: US-ABBVIE-14P-163-1203646-00

PATIENT
  Sex: Female
  Weight: 68.1 kg

DRUGS (4)
  1. LUPRON DEPOT [Suspect]
     Indication: UTERINE LEIOMYOMA
     Route: 030
     Dates: start: 20140110
  2. NORETHINDRONE [Concomitant]
     Indication: PRODUCT USED FOR UNKNOWN INDICATION
  3. ALBUTEROL [Concomitant]
     Indication: ASTHMA
  4. FLOVENT [Concomitant]
     Indication: ASTHMA

REACTIONS (2)
  - Pain [Not Recovered/Not Resolved]
  - Headache [Not Recovered/Not Resolved]
